FAERS Safety Report 4953907-0 (Version None)
Quarter: 2006Q1

REPORT INFORMATION
  Report Type: 
  Country: None (occurrence: None)
  Receive Date: 20060323
  Receipt Date: 20060323
  Transmission Date: 20060701
  Serious: Yes (Hospitalization, Disabling, Other)
  Sender: FDA-Public Use
  Company Number: None

PATIENT
  Age: 44 Year
  Sex: Female
  Weight: 72.5755 kg

DRUGS (2)
  1. LOPID [Suspect]
     Indication: MYOPATHY
     Dosage: 600 BID [3 MONTHS PRIOR TO ONSET OF PAIN]
  2. LOPID [Suspect]
     Indication: MYOSITIS
     Dosage: 600 BID [3 MONTHS PRIOR TO ONSET OF PAIN]

REACTIONS (4)
  - ASTHENIA [None]
  - MYALGIA [None]
  - MYOPATHY [None]
  - MYOSITIS [None]
